FAERS Safety Report 11849817 (Version 1)
Quarter: 2015Q4

REPORT INFORMATION
  Report Type: Spontaneous
  Country: FR (occurrence: FR)
  Receive Date: 20151218
  Receipt Date: 20151218
  Transmission Date: 20160305
  Serious: Yes (Hospitalization)
  Sender: FDA-Public Use
  Company Number: FR-SA-2015SA210647

PATIENT
  Age: 75 Year
  Sex: Female

DRUGS (8)
  1. LASIX [Concomitant]
     Active Substance: FUROSEMIDE
  2. BISOPROLOL [Concomitant]
     Active Substance: BISOPROLOL
  3. PREVISCAN [Interacting]
     Active Substance: FLUINDIONE
     Dosage: SCORED TABLET
     Route: 048
     Dates: end: 20151028
  4. BROMAZEPAM [Concomitant]
     Active Substance: BROMAZEPAM
  5. BURINEX [Concomitant]
     Active Substance: BUMETANIDE
  6. PLAVIX [Suspect]
     Active Substance: CLOPIDOGREL BISULFATE
     Route: 048
     Dates: end: 20151029
  7. CANDESARTAN [Concomitant]
     Active Substance: CANDESARTAN
  8. ROSUVASTATIN [Concomitant]
     Active Substance: ROSUVASTATIN

REACTIONS (4)
  - Drug interaction [Unknown]
  - Haematemesis [Recovered/Resolved]
  - Anaemia [Recovered/Resolved]
  - International normalised ratio increased [Recovered/Resolved]

NARRATIVE: CASE EVENT DATE: 20151027
